FAERS Safety Report 9914305 (Version 2)
Quarter: 2014Q2

REPORT INFORMATION
  Report Type: Spontaneous
  Country: FR (occurrence: None)
  Receive Date: 20140218
  Receipt Date: 20140407
  Transmission Date: 20141212
  Serious: Yes (Hospitalization)
  Sender: FDA-Public Use
  Company Number: FR-014624

PATIENT
  Age: 79 Year
  Sex: Male

DRUGS (1)
  1. FIRMAGON [Suspect]
     Indication: PROSTATE CANCER METASTATIC
     Route: 058
     Dates: start: 20130722, end: 20130722

REACTIONS (8)
  - Inflammation [None]
  - Pyrexia [None]
  - Influenza like illness [None]
  - Injection site reaction [None]
  - Injection site pain [None]
  - Injection site erythema [None]
  - Injection site swelling [None]
  - Injection site induration [None]
